FAERS Safety Report 7592095-1 (Version None)
Quarter: 2011Q2

REPORT INFORMATION
  Report Type: 
  Country: None (occurrence: None)
  Receive Date: 20110628
  Receipt Date: 20110621
  Transmission Date: 20111010
  Serious: Yes (Death, Hospitalization)
  Sender: FDA-Public Use
  Company Number: DSA_45467_2011

PATIENT
  Sex: Female
  Weight: 83.4619 kg

DRUGS (22)
  1. SUCRALFATE [Concomitant]
  2. FOSAMAX [Concomitant]
  3. LIPITOR [Concomitant]
  4. ALBUTEROL SULFATE AUTOHALER [Concomitant]
  5. VITAMIN D [Concomitant]
  6. BROVANA [Concomitant]
  7. SOLU-MEDROL [Concomitant]
  8. DAILY MULTIVITAMIN [Concomitant]
  9. PULMICORT [Concomitant]
  10. SPIRIVA [Concomitant]
  11. ALLOPURINOL [Concomitant]
  12. COUMADIN [Suspect]
     Indication: THROMBOSIS
     Dosage: (DF)
     Dates: start: 20110101, end: 20110415
  13. CARDIZEM CD [Concomitant]
  14. FOLIC ACID [Concomitant]
  15. AZITHROMYCIN [Concomitant]
  16. XENAZINE [Suspect]
     Indication: DYSKINESIA
     Dosage: (25 MG QID ORAL)
     Route: 048
     Dates: start: 20090404
  17. TARCEVA [Suspect]
     Indication: NEOPLASM MALIGNANT
     Dosage: (DF)
     Dates: start: 20110101, end: 20110415
  18. CHEMOTHERAPEUTICS [Concomitant]
  19. PROTONIX [Concomitant]
  20. LEVOTHYROXINE [Concomitant]
  21. REVATIO [Concomitant]
  22. ALDACTONE [Concomitant]

REACTIONS (10)
  - ATRIAL FIBRILLATION [None]
  - ANAEMIA [None]
  - RENAL FAILURE ACUTE [None]
  - METABOLIC ACIDOSIS [None]
  - CHOLELITHIASIS [None]
  - TACHYPNOEA [None]
  - GASTROINTESTINAL HAEMORRHAGE [None]
  - ALOPECIA [None]
  - DYSPNOEA [None]
  - OCCULT BLOOD POSITIVE [None]
